FAERS Safety Report 12719229 (Version 1)
Quarter: 2016Q3

REPORT INFORMATION
  Report Type: Spontaneous
  Country: CN (occurrence: CN)
  Receive Date: 20160907
  Receipt Date: 20160907
  Transmission Date: 20161109
  Serious: Yes (Other)
  Sender: FDA-Public Use
  Company Number: CN-TAKEDA-2016MPI007671

PATIENT

DRUGS (3)
  1. THALIDOMIDE [Suspect]
     Active Substance: THALIDOMIDE
     Indication: PLASMA CELL MYELOMA
     Dosage: 100 MG, QD
     Route: 065
  2. VELCADE [Suspect]
     Active Substance: BORTEZOMIB
     Indication: PLASMA CELL MYELOMA
     Dosage: 1.3 MG/M2, UNK
     Route: 042
  3. DEXAMETHASONE. [Suspect]
     Active Substance: DEXAMETHASONE
     Indication: PLASMA CELL MYELOMA
     Dosage: 20 MG, QD
     Route: 042

REACTIONS (14)
  - Nausea [Unknown]
  - Thrombocytopenia [Recovering/Resolving]
  - Diarrhoea [Unknown]
  - Insomnia [Unknown]
  - Herpes zoster [Unknown]
  - Neuropathy peripheral [Unknown]
  - Constipation [Unknown]
  - Embolism [Unknown]
  - Infection [Unknown]
  - Headache [Unknown]
  - Deep vein thrombosis [Unknown]
  - Leukopenia [Unknown]
  - Asthenia [Unknown]
  - Fatigue [Unknown]
